FAERS Safety Report 20682464 (Version 2)
Quarter: 2022Q2

REPORT INFORMATION
  Report Type: Other
  Country: JP (occurrence: JP)
  Receive Date: 20220407
  Receipt Date: 20220422
  Transmission Date: 20220721
  Serious: Yes (Other)
  Sender: FDA-Public Use
  Company Number: JP-CHUGAI-2022011271

PATIENT
  Age: 56 Year
  Sex: Female
  Weight: 53 kg

DRUGS (5)
  1. SATRALIZUMAB [Suspect]
     Active Substance: SATRALIZUMAB
     Indication: Neuromyelitis optica spectrum disorder
     Dosage: 120 MILLIGRAM, ONCE/2WEEKS
     Route: 058
     Dates: start: 20201015, end: 20201112
  2. SATRALIZUMAB [Suspect]
     Active Substance: SATRALIZUMAB
     Route: 058
     Dates: start: 20201210, end: 20220215
  3. PREDNISOLONE [Suspect]
     Active Substance: PREDNISOLONE
     Indication: Product used for unknown indication
     Dosage: 15 MILLIGRAM/DAY
     Route: 048
     Dates: start: 20201015
  4. PREDNISOLONE [Suspect]
     Active Substance: PREDNISOLONE
     Dosage: 10 MILLIGRAM/DAY
     Route: 048
  5. TACROLIMUS [Concomitant]
     Active Substance: TACROLIMUS
     Indication: Neuromyelitis optica spectrum disorder
     Route: 065

REACTIONS (1)
  - Arthritis infective [Unknown]

NARRATIVE: CASE EVENT DATE: 20220324
